FAERS Safety Report 5337153-7 (Version None)
Quarter: 2007Q2

REPORT INFORMATION
  Report Type: 
  Country: None (occurrence: None)
  Receive Date: 20070529
  Receipt Date: 20070521
  Transmission Date: 20071010
  Serious: Yes (Death)
  Sender: FDA-Public Use
  Company Number: US-BAXTER-2007BH004553

PATIENT
  Age: 78 Year
  Sex: Female
  Weight: 84 kg

DRUGS (1)
  1. MILRINONE LACTATE IN 5% DEXTROSE INJECTION IN PLASTIC CONTAINER [Suspect]
     Indication: POOR PERIPHERAL CIRCULATION
     Route: 042
     Dates: end: 20070424

REACTIONS (3)
  - ACCIDENTAL OVERDOSE [None]
  - DEATH [None]
  - MEDICATION ERROR [None]
